FAERS Safety Report 21607381 (Version 1)
Quarter: 2022Q4

REPORT INFORMATION
  Report Type: Spontaneous
  Country: JP (occurrence: JP)
  Receive Date: 20221117
  Receipt Date: 20221117
  Transmission Date: 20230112
  Serious: Yes (Death, Hospitalization, Other)
  Sender: FDA-Public Use
  Company Number: JP-MSD-M2022-18908

PATIENT
  Sex: Male
  Weight: 62 kg

DRUGS (10)
  1. KEYTRUDA [Suspect]
     Active Substance: PEMBROLIZUMAB
     Indication: Non-small cell lung cancer stage IV
     Dosage: 200 MILLIGRAM, Q3W
     Route: 041
     Dates: start: 20211129, end: 20211129
  2. CARBOPLATIN [Concomitant]
     Active Substance: CARBOPLATIN
     Indication: Non-small cell lung cancer stage IV
     Dosage: 460 MILLIGRAM, ONCE
     Route: 041
     Dates: start: 20211129, end: 20211129
  3. PACLITAXEL [Concomitant]
     Active Substance: PACLITAXEL
     Indication: Non-small cell lung cancer stage IV
     Dosage: 330 MILLIGRAM, ONCE
     Route: 041
     Dates: start: 20211129, end: 20211129
  4. BETAMETHASONE [Concomitant]
     Active Substance: BETAMETHASONE
     Indication: Respiratory tract oedema
     Dosage: 2 MILLIGRAM, BID
     Route: 048
     Dates: start: 20211116, end: 20211120
  5. BETAMETHASONE [Concomitant]
     Active Substance: BETAMETHASONE
     Indication: Lymphangiosis carcinomatosa
     Dosage: 1 MILLIGRAM, BID
     Route: 048
     Dates: start: 20211121, end: 20211123
  6. BETAMETHASONE [Concomitant]
     Active Substance: BETAMETHASONE
     Dosage: 0.5 MILLIGRAM, BID
     Route: 048
     Dates: start: 20211124, end: 20211125
  7. AMITIZA [Concomitant]
     Active Substance: LUBIPROSTONE
     Indication: Constipation
     Dosage: 24 MICROGRAM, BID
     Route: 048
     Dates: start: 20211120, end: 20211126
  8. ELIQUIS [Concomitant]
     Active Substance: APIXABAN
     Indication: Deep vein thrombosis
     Dosage: 10 MILLIGRAM, BID
     Route: 048
     Dates: start: 20211125, end: 20211126
  9. ELIQUIS [Concomitant]
     Active Substance: APIXABAN
     Dosage: 10 MILLIGRAM, BID
     Route: 048
     Dates: start: 20211204, end: 20211210
  10. NEXIUM [Concomitant]
     Active Substance: ESOMEPRAZOLE MAGNESIUM
     Indication: Prophylaxis against gastrointestinal ulcer
     Dosage: 10 MILLIGRAM, QD
     Route: 048
     Dates: start: 20211116, end: 20211126

REACTIONS (4)
  - Hepatitis fulminant [Fatal]
  - Malignant neoplasm progression [Fatal]
  - Septic shock [Unknown]
  - Febrile neutropenia [Unknown]

NARRATIVE: CASE EVENT DATE: 20210101
